FAERS Safety Report 9344033 (Version 2)
Quarter: 2013Q2

REPORT INFORMATION
  Report Type: Spontaneous
  Country: IT (occurrence: IT)
  Receive Date: 20130612
  Receipt Date: 20130617
  Transmission Date: 20140414
  Serious: Yes (Other)
  Sender: FDA-Public Use
  Company Number: IT-PFIZER INC-2013174674

PATIENT
  Age: 67 Year
  Sex: Female

DRUGS (11)
  1. CARBOPLATINO PFIZER ITALIA [Suspect]
     Indication: OVARIAN CANCER RECURRENT
     Dosage: 146 MG, CYCLIC
     Route: 042
     Dates: start: 20130603, end: 20130603
  2. PACLITAXEL [Concomitant]
     Dosage: 98 MG, UNK
     Route: 042
     Dates: start: 20130603, end: 20130603
  3. ANTRA [Concomitant]
     Dosage: 20 MG, UNK
     Route: 048
     Dates: start: 20090515, end: 20130603
  4. DELTACORTENE [Concomitant]
     Dosage: 25 MG, UNK
     Dates: start: 20130602, end: 20130602
  5. FRISTAMIN [Concomitant]
     Dosage: 10 MG, UNK
     Route: 048
     Dates: start: 20130602, end: 20130602
  6. RANITIDINE [Concomitant]
     Dosage: 100 MG, UNK
     Route: 042
     Dates: start: 20130603, end: 20130603
  7. URBASON SOLUBILE [Concomitant]
     Dosage: 12 MG, UNK
     Route: 041
     Dates: start: 20130603, end: 20130603
  8. GRANISETRON [Concomitant]
     Dosage: 3 MG, UNK
     Route: 042
     Dates: start: 20130603, end: 20130603
  9. LEVOBREN [Concomitant]
     Dosage: 25 MG, UNK
     Route: 042
     Dates: start: 20130603, end: 20130603
  10. TRIMETON [Concomitant]
     Dosage: 10 MG, UNK
     Route: 042
     Dates: start: 20130603, end: 20130603
  11. ZANTAC [Concomitant]
     Dosage: 300 MG, UNK
     Route: 048
     Dates: start: 20130602, end: 20130602

REACTIONS (4)
  - Throat tightness [Recovered/Resolved]
  - Paraesthesia oral [Recovered/Resolved]
  - Blood pressure increased [Recovered/Resolved]
  - Infusion related reaction [None]
